FAERS Safety Report 6201421-7 (Version None)
Quarter: 2009Q2

REPORT INFORMATION
  Report Type: 
  Country: None (occurrence: None)
  Receive Date: 20090526
  Receipt Date: 20090520
  Transmission Date: 20091009
  Serious: No
  Sender: FDA-Public Use
  Company Number: US-BAYER-200921463NA

PATIENT
  Age: 34 Year
  Sex: Female
  Weight: 56 kg

DRUGS (1)
  1. MIRENA [Suspect]
     Indication: CONTRACEPTION
     Route: 015
     Dates: start: 20080312, end: 20090519

REACTIONS (7)
  - AMENORRHOEA [None]
  - ASTHENIA [None]
  - FATIGUE [None]
  - STREPTOCOCCAL INFECTION [None]
  - VAGINAL DISCHARGE [None]
  - VAGINAL ODOUR [None]
  - VAGINITIS BACTERIAL [None]
